FAERS Safety Report 21760599 (Version 1)
Quarter: 2022Q4

REPORT INFORMATION
  Report Type: Spontaneous
  Country: GB (occurrence: GB)
  Receive Date: 20221221
  Receipt Date: 20221221
  Transmission Date: 20230113
  Serious: Yes (Life-Threatening, Hospitalization)
  Sender: FDA-Public Use
  Company Number: GB-MHRA-MED-202212161149007380-JMVGW

PATIENT
  Age: 46 Year
  Sex: Female

DRUGS (2)
  1. BARICITINIB [Suspect]
     Active Substance: BARICITINIB
     Indication: Eczema
     Dosage: 4 MG, DAILY
     Route: 065
     Dates: start: 20220616, end: 20221216
  2. DIENOGEST\ESTRADIOL VALERATE [Concomitant]
     Active Substance: DIENOGEST\ESTRADIOL VALERATE
     Indication: Hormone replacement therapy
     Dosage: UNK, UNKNOWN
     Route: 065
     Dates: start: 20220616, end: 20221216

REACTIONS (2)
  - Pulmonary embolism [Not Recovered/Not Resolved]
  - Myocardial strain imaging abnormal [Unknown]

NARRATIVE: CASE EVENT DATE: 20221116
